FAERS Safety Report 20184315 (Version 2)
Quarter: 2022Q1

REPORT INFORMATION
  Report Type: Spontaneous
  Country: US (occurrence: US)
  Receive Date: 20211214
  Receipt Date: 20220316
  Transmission Date: 20220423
  Serious: No
  Sender: FDA-Public Use
  Company Number: US-SK LIFE SCIENCE, INC-SKPVG-2021-000998

PATIENT

DRUGS (1)
  1. XCOPRI [Suspect]
     Active Substance: CENOBAMATE
     Indication: Product used for unknown indication
     Dosage: UNK, STARTED NINE MONTHS AGO
     Route: 065
     Dates: start: 202105

REACTIONS (2)
  - Fatigue [Unknown]
  - Somnolence [Unknown]
